FAERS Safety Report 5584620-7 (Version None)
Quarter: 2008Q1

REPORT INFORMATION
  Report Type: 
  Country: None (occurrence: None)
  Receive Date: 20080108
  Receipt Date: 20071227
  Transmission Date: 20080703
  Serious: Yes (Life-Threatening, Hospitalization)
  Sender: FDA-Public Use
  Company Number: FR-PFIZER INC-2007102266

PATIENT
  Age: 23 Year
  Sex: Female

DRUGS (4)
  1. CHANTIX [Suspect]
     Dosage: DAILY DOSE:2MG
     Route: 048
     Dates: start: 20071107, end: 20071128
  2. ORAL CONTRACEPTIVE NOS [Concomitant]
  3. ALL OTHER THERAPEUTIC PRODUCTS [Concomitant]
     Route: 048
  4. ALL OTHER THERAPEUTIC PRODUCTS [Concomitant]

REACTIONS (2)
  - CARDIAC ARREST [None]
  - VENTRICULAR FIBRILLATION [None]
